FAERS Safety Report 4446714-9 (Version None)
Quarter: 2004Q3

REPORT INFORMATION
  Report Type: 
  Country: None (occurrence: None)
  Receive Date: 20040908
  Receipt Date: 20040903
  Transmission Date: 20050211
  Serious: Yes (Hospitalization)
  Sender: FDA-Public Use
  Company Number: 2004IC000854

PATIENT
  Age: 45 Year
  Sex: Female
  Weight: 164 kg

DRUGS (7)
  1. FLURAZEPAM HCL [Suspect]
     Indication: BIPOLAR DISORDER
     Dosage: 30 MG;DAILY;ORAL
     Route: 048
  2. SEROQUEL [Suspect]
     Indication: BIPOLAR DISORDER
     Dosage: 200 MG;X1;ORAL
     Route: 048
     Dates: start: 20040422, end: 20040422
  3. ZYPREXA [Suspect]
     Indication: BIPOLAR DISORDER
     Dosage: 10MG;DAILY;ORAL
     Route: 048
  4. TEMESTA (LORAZEPAM) (2.5MG) [Suspect]
     Indication: BIPOLAR DISORDER
     Dosage: 2.5MG; 3 TIMES A DAY; ORAL
     Route: 048
  5. LITHIUM CARBONATE [Concomitant]
  6. VALPROIC ACID [Concomitant]
  7. AKINETON [Concomitant]

REACTIONS (3)
  - DEPRESSED LEVEL OF CONSCIOUSNESS [None]
  - RESPIRATORY FAILURE [None]
  - SLEEP APNOEA SYNDROME [None]
